FAERS Safety Report 8317898-7 (Version None)
Quarter: 2012Q2

REPORT INFORMATION
  Report Type: 
  Country: None (occurrence: None)
  Receive Date: 20120427
  Receipt Date: 20120419
  Transmission Date: 20120825
  Serious: Yes (Other)
  Sender: FDA-Public Use
  Company Number: KR-BAYER-2012-038184

PATIENT
  Age: 42 Year
  Sex: Female

DRUGS (1)
  1. YAZ [Suspect]
     Indication: ORAL CONTRACEPTION
     Route: 048

REACTIONS (7)
  - ENDOMETRIOSIS [None]
  - PSEUDOPOLYPOSIS [None]
  - HAEMATOCHEZIA [None]
  - DIARRHOEA [None]
  - INTESTINAL MASS [None]
  - RECTAL STENOSIS [None]
  - ABDOMINAL PAIN LOWER [None]
